FAERS Safety Report 8600866-5 (Version None)
Quarter: 2012Q3

REPORT INFORMATION
  Report Type: 
  Country: None (occurrence: None)
  Receive Date: 20120817
  Receipt Date: 20101130
  Transmission Date: 20120928
  Serious: Yes (Other)
  Sender: FDA-Public Use
  Company Number: CO-PFIZER INC-2012198089

PATIENT
  Age: 63 Year
  Sex: Male

DRUGS (4)
  1. GLIBENCLAMIDE [Concomitant]
     Dosage: 5 MG, TWICE DAILY
  2. LIPITOR [Suspect]
     Indication: DYSLIPIDAEMIA
     Dosage: 40 MG, ONCE DAILY
  3. METOPROLOL TARTRATE [Concomitant]
     Dosage: 50 MG, TWICE DAILY
  4. OLMESARTAN MEDOXOMIL [Suspect]
     Indication: HYPERTENSION
     Dosage: 20 MG, ONCE DAILY

REACTIONS (4)
  - HEMIPLEGIA [None]
  - EXERCISE LACK OF [None]
  - MALNUTRITION [None]
  - HYPERTENSIVE EMERGENCY [None]
